FAERS Safety Report 7415650-8 (Version None)
Quarter: 2011Q2

REPORT INFORMATION
  Report Type: 
  Country: None (occurrence: None)
  Receive Date: 20110414
  Receipt Date: 20110405
  Transmission Date: 20111010
  Serious: Yes (Hospitalization)
  Sender: FDA-Public Use
  Company Number: BR-ASTRAZENECA-2011SE19343

PATIENT
  Age: 77 Year
  Sex: Female
  Weight: 72 kg

DRUGS (6)
  1. OLCADIL [Concomitant]
     Indication: INSOMNIA
  2. CRESTOR [Suspect]
     Indication: HYPERCHOLESTEROLAEMIA
     Dosage: EVERY OTHER DAY
     Route: 048
     Dates: start: 20090101
  3. SELOZOK [Suspect]
     Indication: ARRHYTHMIA
     Dosage: DAILY
     Route: 048
     Dates: start: 20050101
  4. ZETIA [Concomitant]
     Indication: HYPERCHOLESTEROLAEMIA
     Route: 048
     Dates: start: 20090101
  5. ZESTRIL [Suspect]
     Indication: HYPERTENSION
     Dosage: DAILY
     Route: 048
     Dates: start: 19910101
  6. SINVASTATIN MANIPULATED FORMULA [Concomitant]
     Indication: HYPERCHOLESTEROLAEMIA
     Route: 048
     Dates: start: 20010101, end: 20090101

REACTIONS (6)
  - ARRHYTHMIA [None]
  - WEIGHT INCREASED [None]
  - BLOOD PRESSURE INADEQUATELY CONTROLLED [None]
  - INSOMNIA [None]
  - HYPERCHOLESTEROLAEMIA [None]
  - DRUG PRESCRIBING ERROR [None]
